FAERS Safety Report 19229920 (Version 2)
Quarter: 2021Q2

REPORT INFORMATION
  Report Type: Spontaneous
  Country: HU (occurrence: HU)
  Receive Date: 20210506
  Receipt Date: 20210514
  Transmission Date: 20210717
  Serious: Yes (Death, Hospitalization, Other)
  Sender: FDA-Public Use
  Company Number: HU-B.I. PHARMACEUTICALS,INC./RIDGEFIELD-2021-BI-100643

PATIENT
  Age: 64 Year
  Sex: Male
  Weight: 54 kg

DRUGS (5)
  1. VEROSPIRON [Concomitant]
     Active Substance: SPIRONOLACTONE
  2. PRADAXA [Suspect]
     Active Substance: DABIGATRAN ETEXILATE MESYLATE
     Indication: CEREBROVASCULAR ACCIDENT PROPHYLAXIS
     Route: 065
     Dates: start: 20181127, end: 20210425
  3. PRADAXA [Suspect]
     Active Substance: DABIGATRAN ETEXILATE MESYLATE
     Indication: ATRIAL FIBRILLATION
  4. BISOPROLOL [Concomitant]
     Active Substance: BISOPROLOL
  5. THEOSPIREX [THEOPHYLLINE] [Concomitant]

REACTIONS (2)
  - COVID-19 [Recovered/Resolved]
  - Ischaemic stroke [Fatal]

NARRATIVE: CASE EVENT DATE: 202103
